FAERS Safety Report 24173760 (Version 1)
Quarter: 2024Q3

REPORT INFORMATION
  Report Type: Spontaneous
  Country: US (occurrence: US)
  Receive Date: 20240805
  Receipt Date: 20240805
  Transmission Date: 20241016
  Serious: No
  Sender: ABBVIE
  Company Number: US-ABBVIE-5862717

PATIENT

DRUGS (1)
  1. REFRESH RELIEVA PF [Suspect]
     Active Substance: CARBOXYMETHYLCELLULOSE SODIUM\GLYCERIN
     Indication: Dry eye
     Dosage: CMC 5MG/ML;GLYCERIN 9MG.ML SOL?FORM STRENGTH:10 MILLIGRAM?UNIT DOSE 10 MG
     Route: 047

REACTIONS (1)
  - Device difficult to use [Not Recovered/Not Resolved]
